FAERS Safety Report 21373201 (Version 2)
Quarter: 2023Q2

REPORT INFORMATION
  Report Type: Spontaneous
  Country: US (occurrence: US)
  Receive Date: 20220924
  Receipt Date: 20230628
  Transmission Date: 20230722
  Serious: No
  Sender: FDA-Public Use
  Company Number: US-CTI BIOPHARMA-2022US02963

PATIENT

DRUGS (3)
  1. VONJO [Suspect]
     Active Substance: PACRITINIB
     Indication: Myelofibrosis
     Dosage: 100 MILLIGRAM, BID
     Route: 048
     Dates: start: 20220625
  2. NEURONTIN [Concomitant]
     Active Substance: GABAPENTIN
     Dosage: 100 MG, TID
  3. IRON [Concomitant]
     Active Substance: IRON

REACTIONS (5)
  - Gait disturbance [Unknown]
  - Hypoaesthesia [Unknown]
  - Cardiac flutter [Unknown]
  - Product dose omission issue [Unknown]
  - Laboratory test abnormal [Unknown]

NARRATIVE: CASE EVENT DATE: 20220101
